FAERS Safety Report 7456648-3 (Version None)
Quarter: 2011Q2

REPORT INFORMATION
  Report Type: 
  Country: None (occurrence: None)
  Receive Date: 20110503
  Receipt Date: 20110428
  Transmission Date: 20111010
  Serious: Yes (Life-Threatening, Hospitalization)
  Sender: FDA-Public Use
  Company Number: JP-AMGEN-JPNSP2011009413

PATIENT
  Age: 71 Year
  Sex: Male
  Weight: 39 kg

DRUGS (4)
  1. TAKEPRON [Concomitant]
     Indication: GASTRIC ULCER
     Dosage: 15 UNK, 1X/DAY
     Route: 048
     Dates: end: 20110203
  2. LASIX [Concomitant]
     Indication: CARDIAC FAILURE
     Dosage: 20 G, 1X/DAY
     Route: 048
     Dates: end: 20110203
  3. ENBREL [Suspect]
     Indication: RHEUMATOID ARTHRITIS
     Dosage: 25 MG, 2X/WEEK
     Route: 058
     Dates: start: 20060810, end: 20110124
  4. RHEUMATREX [Suspect]
     Indication: RHEUMATOID ARTHRITIS
     Dosage: 4 MG, WEEKLY
     Route: 048
     Dates: start: 20100601, end: 20110101

REACTIONS (5)
  - PNEUMONIA STAPHYLOCOCCAL [None]
  - PNEUMONIA ESCHERICHIA [None]
  - PNEUMONIA KLEBSIELLA [None]
  - AUTOIMMUNE DISORDER [None]
  - LOSS OF CONSCIOUSNESS [None]
